FAERS Safety Report 13655284 (Version 1)
Quarter: 2017Q2

REPORT INFORMATION
  Report Type: Spontaneous
  Country: US (occurrence: US)
  Receive Date: 20170614
  Receipt Date: 20170614
  Transmission Date: 20170830
  Serious: No
  Sender: FDA-Public Use
  Company Number: None

PATIENT
  Age: 41 Year
  Sex: Female

DRUGS (1)
  1. COSENTYX [Suspect]
     Active Substance: SECUKINUMAB

REACTIONS (7)
  - Urinary tract infection [None]
  - Rheumatoid arthritis [None]
  - Hypoaesthesia [None]
  - Therapy cessation [None]
  - Nausea [None]
  - Paraesthesia [None]
  - Fatigue [None]

NARRATIVE: CASE EVENT DATE: 20170501
